FAERS Safety Report 21141035 (Version 4)
Quarter: 2024Q2

REPORT INFORMATION
  Report Type: Other
  Country: JP (occurrence: JP)
  Receive Date: 20220728
  Receipt Date: 20240409
  Transmission Date: 20240716
  Serious: Yes (Death, Other)
  Sender: FDA-Public Use
  Company Number: JP-CHUGAI-2022028216AA

PATIENT
  Age: 61 Year
  Sex: Female
  Weight: 35.2 kg

DRUGS (5)
  1. POLIVY [Suspect]
     Active Substance: POLATUZUMAB VEDOTIN-PIIQ
     Indication: Diffuse large B-cell lymphoma
     Route: 041
     Dates: start: 20210722, end: 20210727
  2. ACTEMRA [Suspect]
     Active Substance: TOCILIZUMAB
     Indication: Cytokine release syndrome
     Dosage: UNK
     Route: 065
     Dates: start: 20210801
  3. KYMRIAH [Suspect]
     Active Substance: TISAGENLECLEUCEL
     Indication: Diffuse large B-cell lymphoma
     Dosage: FULL DOSE
     Route: 041
     Dates: start: 20210727, end: 20210727
  4. RITUXAN [Concomitant]
     Active Substance: RITUXIMAB
     Indication: Diffuse large B-cell lymphoma
     Dosage: UNK
     Route: 065
     Dates: start: 20210722, end: 20210727
  5. BENDAMUSTINE HYDROCHLORIDE [Concomitant]
     Active Substance: BENDAMUSTINE HYDROCHLORIDE
     Indication: Diffuse large B-cell lymphoma
     Dosage: UNK
     Route: 041
     Dates: start: 20210722, end: 20210727

REACTIONS (6)
  - Cytokine release syndrome [Recovered/Resolved]
  - Lymphocyte count decreased [Unknown]
  - Neutrophil count decreased [Recovered/Resolved]
  - Gastroenteritis Escherichia coli [Unknown]
  - Platelet count decreased [Unknown]
  - Disease progression [Fatal]

NARRATIVE: CASE EVENT DATE: 20210731
